FAERS Safety Report 10208657 (Version 1)
Quarter: 2014Q2

REPORT INFORMATION
  Report Type: Spontaneous
  Country: GB (occurrence: GB)
  Receive Date: 20140530
  Receipt Date: 20140530
  Transmission Date: 20141212
  Serious: Yes (Other)
  Sender: FDA-Public Use
  Company Number: GB-B.I. PHARMACEUTICALS,INC./RIDGEFIELD-2014-BI-23118UK

PATIENT
  Age: 73 Year
  Sex: Female
  Weight: 105 kg

DRUGS (8)
  1. TRAJENTA [Suspect]
     Indication: PRODUCT USED FOR UNKNOWN INDICATION
     Route: 048
     Dates: start: 201403, end: 20140503
  2. DIGOXIN [Concomitant]
     Route: 065
  3. FUROSEMIDE [Concomitant]
     Route: 065
  4. GLICLAZIDE [Concomitant]
     Route: 065
  5. RAMIPRIL [Concomitant]
     Route: 065
  6. ROSUVASTATIN [Concomitant]
     Route: 065
  7. TILDIEM LA [Concomitant]
     Route: 065
  8. WARFARIN [Concomitant]
     Route: 065

REACTIONS (3)
  - Gastrointestinal haemorrhage [Recovered/Resolved]
  - Haemorrhage urinary tract [Recovered/Resolved]
  - Vaginal haemorrhage [Recovered/Resolved]
